FAERS Safety Report 5325103-9 (Version None)
Quarter: 2007Q2

REPORT INFORMATION
  Report Type: 
  Country: None (occurrence: None)
  Receive Date: 20070515
  Receipt Date: 20070504
  Transmission Date: 20071010
  Serious: Yes (Hospitalization, Other)
  Sender: FDA-Public Use
  Company Number: DE-ROCHE-479572

PATIENT
  Age: 59 Year
  Sex: Female

DRUGS (2)
  1. XELODA [Suspect]
     Indication: DRUG USE FOR UNKNOWN INDICATION
     Route: 065
  2. MARCUMAR [Concomitant]
     Indication: THROMBOSIS PROPHYLAXIS
     Dates: start: 20061101

REACTIONS (7)
  - BUNDLE BRANCH BLOCK LEFT [None]
  - CARDIAC FAILURE [None]
  - MITRAL VALVE INCOMPETENCE [None]
  - MYOCARDIAL INFARCTION [None]
  - PANCYTOPENIA [None]
  - PULMONARY EMBOLISM [None]
  - TRICUSPID VALVE INCOMPETENCE [None]
